FAERS Safety Report 11877669 (Version 2)
Quarter: 2016Q1

REPORT INFORMATION
  Report Type: Other
  Country: GB (occurrence: GB)
  Receive Date: 20151230
  Receipt Date: 20160112
  Transmission Date: 20160526
  Serious: Yes (Other)
  Sender: FDA-Public Use
  Company Number: GB-MYLANLABS-2015M1045816

PATIENT

DRUGS (4)
  1. SOLIRIS [Suspect]
     Active Substance: ECULIZUMAB
     Indication: HAEMOLYTIC URAEMIC SYNDROME
     Dosage: 900 MG, QW
     Dates: start: 20140812
  2. SOLIRIS [Suspect]
     Active Substance: ECULIZUMAB
     Indication: OFF LABEL USE
     Dosage: 1200 MG, 2X (1200 MG, Q2W)
     Route: 042
     Dates: start: 20140909, end: 20150608
  3. TACROLIMUS. [Suspect]
     Active Substance: TACROLIMUS
     Indication: PRODUCT USED FOR UNKNOWN INDICATION
     Dosage: UNK
     Route: 065
  4. SOLIRIS [Suspect]
     Active Substance: ECULIZUMAB
     Indication: RENAL TRANSPLANT
     Dosage: UNK

REACTIONS (5)
  - Drug ineffective [Unknown]
  - Off label use [Recovered/Resolved]
  - Graft loss [Unknown]
  - Pneumonia [Unknown]
  - Opportunistic infection [Unknown]

NARRATIVE: CASE EVENT DATE: 20150630
